FAERS Safety Report 6911581-8 (Version None)
Quarter: 2010Q3

REPORT INFORMATION
  Report Type: 
  Country: None (occurrence: None)
  Receive Date: 20100806
  Receipt Date: 20100730
  Transmission Date: 20110219
  Serious: Yes (Other)
  Sender: FDA-Public Use
  Company Number: US-BAYER-201029570NA

PATIENT
  Sex: Female

DRUGS (2)
  1. YAZ [Suspect]
     Route: 048
     Dates: start: 20040801
  2. YASMIN [Suspect]
     Route: 048
     Dates: start: 20040801

REACTIONS (2)
  - GALLBLADDER DISORDER [None]
  - RENAL FAILURE [None]
